FAERS Safety Report 4394401-8 (Version None)
Quarter: 2004Q3

REPORT INFORMATION
  Report Type: 
  Country: None (occurrence: None)
  Receive Date: 20040707
  Receipt Date: 20040624
  Transmission Date: 20050211
  Serious: Yes (Hospitalization)
  Sender: FDA-Public Use
  Company Number: 2004017837

PATIENT
  Age: 41 Year
  Sex: Male

DRUGS (2)
  1. LIPITOR [Suspect]
     Indication: HYPERCHOLESTEROLAEMIA
     Dosage: 10 MG (1 IN 1 D), ORAL
     Route: 048
     Dates: start: 20031110
  2. ACETYLSALICYLIC ACID SRT [Concomitant]

REACTIONS (2)
  - AMNESIA [None]
  - MENTAL STATUS CHANGES [None]
